FAERS Safety Report 6608549-8 (Version None)
Quarter: 2010Q1

REPORT INFORMATION
  Report Type: 
  Country: None (occurrence: None)
  Receive Date: 20100301
  Receipt Date: 20100128
  Transmission Date: 20100710
  Serious: No
  Sender: FDA-Public Use
  Company Number: US-BAYER-201011411BCC

PATIENT
  Age: 47 Year
  Sex: Female
  Weight: 100 kg

DRUGS (2)
  1. ALEVE [Suspect]
     Indication: NECK PAIN
     Route: 048
     Dates: start: 20100101, end: 20100101
  2. ALEVE [Suspect]
     Dosage: UNIT DOSE: 220 MG
     Route: 048
     Dates: start: 20100125, end: 20100125

REACTIONS (2)
  - ERYTHEMA [None]
  - PRURITUS GENERALISED [None]
